FAERS Safety Report 5522133-9 (Version None)
Quarter: 2007Q4

REPORT INFORMATION
  Report Type: 
  Country: None (occurrence: None)
  Receive Date: 20071120
  Receipt Date: 20071115
  Transmission Date: 20080405
  Serious: Yes (Hospitalization)
  Sender: FDA-Public Use
  Company Number: US-MERCK-0705USA00823

PATIENT
  Age: 69 Year
  Sex: Female

DRUGS (14)
  1. FOSAMAX [Suspect]
     Indication: OSTEOPOROSIS
     Route: 048
     Dates: start: 20010201, end: 20060101
  2. FOSAMAX [Suspect]
     Indication: FRACTURED SACRUM
     Route: 048
     Dates: start: 20010201, end: 20060101
  3. TAMOXIFEN CITRATE [Concomitant]
     Indication: BREAST CANCER
     Route: 048
     Dates: start: 20000101, end: 20050101
  4. COUMADIN [Concomitant]
     Indication: ATRIAL FIBRILLATION
     Route: 048
     Dates: start: 19980101
  5. ATENOLOL [Concomitant]
     Indication: HEART RATE ABNORMAL
     Route: 048
     Dates: start: 19980101
  6. RAMIPRIL [Concomitant]
     Indication: HEART RATE ABNORMAL
     Route: 065
     Dates: start: 19980101
  7. VIOXX [Concomitant]
     Route: 048
     Dates: start: 20040101
  8. MELOXICAM [Concomitant]
     Indication: ARTHRITIS
     Route: 065
     Dates: start: 20040101
  9. PERCOCET [Concomitant]
     Route: 065
  10. LISINOPRIL [Concomitant]
     Route: 048
  11. MIACALCIN [Concomitant]
     Route: 065
  12. AMITRIPTYLINE HYDROCHLORIDE [Concomitant]
     Route: 065
  13. MOTRIN [Concomitant]
     Route: 065
  14. CALCIUM (UNSPECIFIED) AND VITAMIN D (UNSPECIFIED) [Concomitant]
     Route: 048

REACTIONS (20)
  - ANXIETY [None]
  - BLOOD CREATININE INCREASED [None]
  - DEPRESSION [None]
  - EXOSTOSIS [None]
  - FALL [None]
  - FISTULA [None]
  - GINGIVAL BLEEDING [None]
  - IMPAIRED HEALING [None]
  - MENTAL STATUS CHANGES [None]
  - METRORRHAGIA [None]
  - ORAL INFECTION [None]
  - OSTEOMYELITIS [None]
  - OSTEONECROSIS [None]
  - PERIODONTAL DISEASE [None]
  - PYOGENIC GRANULOMA [None]
  - SINUSITIS [None]
  - SPINAL DISORDER [None]
  - SPINAL FRACTURE [None]
  - TOOTH FRACTURE [None]
  - URINARY INCONTINENCE [None]
